FAERS Safety Report 7007423-5 (Version None)
Quarter: 2010Q3

REPORT INFORMATION
  Report Type: 
  Country: None (occurrence: None)
  Receive Date: 20100922
  Receipt Date: 20100913
  Transmission Date: 20110219
  Serious: Yes (Hospitalization)
  Sender: FDA-Public Use
  Company Number: PHHO2010FR13923

PATIENT
  Sex: Male

DRUGS (2)
  1. NEORAL [Suspect]
     Indication: RENAL TRANSPLANT
     Dosage: 175 MG / DAY
     Route: 048
     Dates: start: 20090929
  2. NEORAL [Suspect]
     Dosage: 200 MG / DAY
     Route: 048

REACTIONS (5)
  - HYDRONEPHROSIS [None]
  - NEPHROSTOMY [None]
  - RENAL FAILURE ACUTE [None]
  - RENAL TUBULAR DISORDER [None]
  - URETERAL CATHETERISATION [None]
